FAERS Safety Report 13793773 (Version 2)
Quarter: 2017Q3

REPORT INFORMATION
  Report Type: Spontaneous
  Country: US (occurrence: US)
  Receive Date: 20170726
  Receipt Date: 20170803
  Transmission Date: 20171127
  Serious: Yes (Other)
  Sender: FDA-Public Use
  Company Number: US-AUROBINDO-AUR-APL-2017-37454

PATIENT
  Age: 50 Year
  Sex: Male

DRUGS (6)
  1. TRIMETHOPRIM SULFAMETHOXAZOLE [Concomitant]
     Active Substance: SULFAMETHOXAZOLE\TRIMETHOPRIM
     Indication: BRAIN ABSCESS
  2. IMIPENEM [Concomitant]
     Active Substance: IMIPENEM
     Indication: BRAIN ABSCESS
     Dosage: 500 MG IV, EVERY 8 HOURS
     Route: 042
  3. COTRIMOXAZOLE [Concomitant]
     Active Substance: SULFAMETHOXAZOLE\TRIMETHOPRIM
     Indication: BRAIN ABSCESS
  4. LINEZOLID. [Concomitant]
     Active Substance: LINEZOLID
     Indication: BRAIN ABSCESS
     Dosage: (600 MG IV, EVERY 12 HOURS
     Route: 042
  5. DEXAMETHASONE. [Suspect]
     Active Substance: DEXAMETHASONE
     Indication: BRAIN ABSCESS
     Dosage: 6 MG, EVERY 6 HRS
     Route: 042
  6. MOXIFLOXACIN. [Concomitant]
     Active Substance: MOXIFLOXACIN
     Indication: BRAIN ABSCESS

REACTIONS (4)
  - Vision blurred [Recovered/Resolved]
  - Papilloedema [Recovered/Resolved]
  - Condition aggravated [Recovered/Resolved]
  - Withdrawal syndrome [Recovered/Resolved]
